FAERS Safety Report 11749502 (Version 3)
Quarter: 2016Q1

REPORT INFORMATION
  Report Type: Spontaneous
  Country: US (occurrence: US)
  Receive Date: 20151118
  Receipt Date: 20160311
  Transmission Date: 20160525
  Serious: No
  Sender: FDA-Public Use
  Company Number: US-PFIZER INC-2015393593

PATIENT
  Age: 55 Year
  Sex: Female

DRUGS (1)
  1. XELJANZ [Suspect]
     Active Substance: TOFACITINIB CITRATE
     Dosage: 5 MG, UNK
     Dates: start: 20150520

REACTIONS (6)
  - Change of bowel habit [Unknown]
  - Hypersensitivity [Unknown]
  - Sinus disorder [Unknown]
  - Sinus headache [Unknown]
  - Abdominal pain upper [Unknown]
  - Condition aggravated [Unknown]
